FAERS Safety Report 9527795 (Version 1)
Quarter: 2013Q3

REPORT INFORMATION
  Report Type: Spontaneous
  Country: US (occurrence: None)
  Receive Date: 20130913
  Receipt Date: 20130913
  Transmission Date: 20140515
  Serious: Yes (Death)
  Sender: FDA-Public Use
  Company Number: 2013/178

PATIENT
  Age: 80 Year
  Sex: Male
  Weight: 78.92 kg

DRUGS (3)
  1. TERBINAFINE [Suspect]
     Route: 048
     Dates: start: 20130627, end: 20130727
  2. OMPERAZOLE NO PREF. NAME [Concomitant]
  3. PREDNISOLONE NO PREF. NAME [Concomitant]

REACTIONS (3)
  - Pneumonia [None]
  - Myocardial infarction [None]
  - Stevens-Johnson syndrome [None]
